FAERS Safety Report 8474822-4 (Version None)
Quarter: 2012Q2

REPORT INFORMATION
  Report Type: 
  Country: None (occurrence: None)
  Receive Date: 20120628
  Receipt Date: 20120605
  Transmission Date: 20120825
  Serious: Yes (Other)
  Sender: FDA-Public Use
  Company Number: DE-ASTRAZENECA-2012SE15046

PATIENT
  Age: 72 Year
  Sex: Male
  Weight: 77 kg

DRUGS (17)
  1. BISOPROLOL FUMARATE [Concomitant]
     Route: 048
  2. HEPARIN [Concomitant]
     Route: 058
  3. ZINC SULFATE [Concomitant]
  4. MEROPENEM [Suspect]
     Indication: PNEUMONIA
     Route: 042
  5. MOXIFLOXACIN/CEFTAZIDINE [Concomitant]
  6. CIPROFLOXACIN [Concomitant]
  7. PROTEIN [Concomitant]
  8. LEVOTHYROXINE SODIUM [Concomitant]
     Route: 048
  9. SELENIUM [Concomitant]
  10. TORSEMIDE [Concomitant]
     Dosage: 5 MG TUESDAY, THURSDAY, SATAURDAY, SUNDAY
     Route: 048
  11. ASPIRIN [Concomitant]
     Route: 048
  12. POTASSIUM ACETATE [Concomitant]
  13. BRILINTA [Suspect]
     Route: 048
  14. PANTOPRAZOLE [Concomitant]
     Route: 048
  15. TORSEMIDE [Concomitant]
     Dosage: 10 MG MONDAY, WEDNESDAY, FRIDAY
     Route: 048
  16. SIMVASTATIN [Concomitant]
     Route: 048
  17. HEPARIN [Concomitant]
     Route: 058

REACTIONS (15)
  - PNEUMONIA [None]
  - DYSPNOEA [None]
  - ACUTE HEPATIC FAILURE [None]
  - PANIC ATTACK [None]
  - DYSURIA [None]
  - DEPRESSED MOOD [None]
  - RENAL FAILURE ACUTE [None]
  - BRADYARRHYTHMIA [None]
  - DEVICE RELATED INFECTION [None]
  - VENTRICULAR EXTRASYSTOLES [None]
  - NORMOCHROMIC NORMOCYTIC ANAEMIA [None]
  - BLOOD POTASSIUM DECREASED [None]
  - URINARY TRACT INFECTION [None]
  - BLOOD URIC ACID INCREASED [None]
  - SUPRAVENTRICULAR EXTRASYSTOLES [None]
